FAERS Safety Report 7810734-4 (Version None)
Quarter: 2011Q4

REPORT INFORMATION
  Report Type: 
  Country: None (occurrence: None)
  Receive Date: 20111011
  Receipt Date: 20110928
  Transmission Date: 20120403
  Serious: Yes (Death)
  Sender: FDA-Public Use
  Company Number: 1000023888

PATIENT
  Age: 94 Year
  Sex: Male

DRUGS (7)
  1. LORAZEPAM [Concomitant]
  2. MEMANTINE HYDROCHLORIDE [Suspect]
     Indication: DEMENTIA ALZHEIMER'S TYPE
     Dosage: 20 MG (20 MG, 1 IN 1 D), ORAL
     Route: 048
     Dates: start: 20110728, end: 20110824
  3. MEMANTINE HYDROCHLORIDE [Suspect]
     Indication: ABNORMAL BEHAVIOUR
     Dosage: 20 MG (20 MG, 1 IN 1 D), ORAL
     Route: 048
     Dates: start: 20110728, end: 20110824
  4. TRAZOLAN (TRAZODONE HYDROCHLORIDE) (TRAZODONE HYDROCHLORIDE) [Concomitant]
  5. REMERON [Concomitant]
  6. LEPONEX (CLOZAPINE) (CLOZAPINE) [Concomitant]
  7. VALPROIC ACID [Concomitant]

REACTIONS (9)
  - DEHYDRATION [None]
  - MOBILITY DECREASED [None]
  - AGITATION [None]
  - GENERAL PHYSICAL HEALTH DETERIORATION [None]
  - RESTLESSNESS [None]
  - FALL [None]
  - DRUG INTERACTION [None]
  - DELIRIUM [None]
  - MALNUTRITION [None]
